FAERS Safety Report 9445383 (Version 2)
Quarter: 2013Q3

REPORT INFORMATION
  Report Type: Spontaneous
  Country: US (occurrence: US)
  Receive Date: 20130807
  Receipt Date: 20130821
  Transmission Date: 20140515
  Serious: Yes (Death)
  Sender: FDA-Public Use
  Company Number: US-GILEAD-2013-0080819

PATIENT
  Age: 69 Year
  Sex: Female

DRUGS (5)
  1. LETAIRIS [Suspect]
     Indication: PULMONARY HYPERTENSION
     Dosage: 5 MG, QD
     Dates: start: 20130517
  2. LETAIRIS [Suspect]
     Indication: RESTRICTIVE PULMONARY DISEASE
  3. LETAIRIS [Suspect]
     Indication: MULTIPLE SCLEROSIS
  4. TYVASO [Concomitant]
  5. ADCIRCA [Concomitant]

REACTIONS (1)
  - Death [Fatal]
